FAERS Safety Report 14950394 (Version 1)
Quarter: 2018Q2

REPORT INFORMATION
  Report Type: Spontaneous
  Country: JP (occurrence: JP)
  Receive Date: 20180530
  Receipt Date: 20180530
  Transmission Date: 20180711
  Serious: Yes (Death, Hospitalization, Other)
  Sender: FDA-Public Use
  Company Number: JP-BRISTOL-MYERS SQUIBB COMPANY-BMS-2018-049682

PATIENT
  Age: 55 Year
  Sex: Male

DRUGS (1)
  1. OPDIVO [Suspect]
     Active Substance: NIVOLUMAB
     Indication: NON-SMALL CELL LUNG CANCER RECURRENT
     Dosage: 216 MG, UNK
     Route: 041
     Dates: start: 20160727, end: 20160906

REACTIONS (7)
  - Interstitial lung disease [Fatal]
  - Upper respiratory tract infection [Recovering/Resolving]
  - Malignant neoplasm progression [Fatal]
  - Diarrhoea [Recovering/Resolving]
  - Autoimmune colitis [Not Recovered/Not Resolved]
  - Pericarditis malignant [Not Recovered/Not Resolved]
  - Cardiac tamponade [Not Recovered/Not Resolved]

NARRATIVE: CASE EVENT DATE: 20160802
